FAERS Safety Report 5356567-2 (Version None)
Quarter: 2007Q2

REPORT INFORMATION
  Report Type: 
  Country: None (occurrence: None)
  Receive Date: 20070612
  Receipt Date: 20070605
  Transmission Date: 20071010
  Serious: No
  Sender: FDA-Public Use
  Company Number: E2020-01113-SPO-CH

PATIENT
  Age: 82 Year
  Sex: Male
  Weight: 93 kg

DRUGS (4)
  1. ARICEPT [Suspect]
     Indication: DEMENTIA ALZHEIMER'S TYPE
     Dosage: 5 MG, 1 IN 1 D, ORAL
     Route: 048
     Dates: start: 20060901, end: 20070313
  2. MARCUMAR [Concomitant]
  3. TOREM (TORASEMIDE) [Concomitant]
  4. CO-DIOVAN (CO-DIOVAN) [Concomitant]

REACTIONS (1)
  - BRADYCARDIA [None]
